FAERS Safety Report 7379147-6 (Version None)
Quarter: 2011Q1

REPORT INFORMATION
  Report Type: 
  Country: None (occurrence: None)
  Receive Date: 20110328
  Receipt Date: 20110315
  Transmission Date: 20110831
  Serious: Yes (Hospitalization)
  Sender: FDA-Public Use
  Company Number: PHHY2011US18330

PATIENT
  Sex: Male
  Weight: 113.83 kg

DRUGS (2)
  1. NEORAL [Suspect]
     Indication: ECZEMA
     Dosage: 100 MG, BID
     Route: 048
  2. PREDNISONE [Concomitant]

REACTIONS (5)
  - MALAISE [None]
  - OEDEMA PERIPHERAL [None]
  - DERMATITIS [None]
  - ECZEMA [None]
  - SWELLING FACE [None]
